FAERS Safety Report 24744371 (Version 2)
Quarter: 2025Q1

REPORT INFORMATION
  Report Type: Spontaneous
  Country: SE (occurrence: SE)
  Receive Date: 20241217
  Receipt Date: 20250102
  Transmission Date: 20250408
  Serious: Yes (Other)
  Sender: GLAXOSMITHKLINE
  Company Number: SE-GSKCCFEMEA-Case-02140269_AE-91428

PATIENT

DRUGS (1)
  1. NUCALA [Suspect]
     Active Substance: MEPOLIZUMAB
     Indication: Asthma

REACTIONS (3)
  - Waldenstrom^s macroglobulinaemia [Unknown]
  - Anaemia [Unknown]
  - Haemophilia [Unknown]
